FAERS Safety Report 5429541-5 (Version None)
Quarter: 2007Q3

REPORT INFORMATION
  Report Type: 
  Country: None (occurrence: None)
  Receive Date: 20070829
  Receipt Date: 20070612
  Transmission Date: 20080115
  Serious: No
  Sender: FDA-Public Use
  Company Number: A0655263A

PATIENT
  Age: 50 Year
  Sex: Male

DRUGS (2)
  1. BECONASE [Suspect]
     Dosage: 1SPR VARIABLE DOSE
     Route: 045
  2. PREVACID [Concomitant]

REACTIONS (1)
  - DRUG INEFFECTIVE [None]
